FAERS Safety Report 10381147 (Version 1)
Quarter: 2014Q1

REPORT INFORMATION
  Report Type: Spontaneous
  Country: US (occurrence: None)
  Receive Date: 20140306
  Receipt Date: 20140306
  Transmission Date: 20141002
  Serious: Yes (Hospitalization, Other)
  Sender: FDA-Public Use
  Company Number: 163-21880-13030795

PATIENT
  Age: 40 Year
  Sex: Male

DRUGS (10)
  1. REVLIMID (LENALIDOMIDE) (25 MILLIGRAM, CAPSULES) [Suspect]
     Indication: PLASMA CELL MYELOMA
     Route: 048
     Dates: start: 20120924, end: 2012
  2. REVLIMID (LENALIDOMIDE) (25 MILLIGRAM, CAPSULES) [Suspect]
     Indication: LIGHT CHAIN DISEASE
     Route: 048
     Dates: start: 20120924, end: 2012
  3. CALCIUM ACETATE (CALCIUM ACETATE) [Concomitant]
  4. DEXAMETHASONE (DEXAMETHASONE0 [Concomitant]
  5. ENDOCET (OXYCOCET) [Concomitant]
  6. PANTOPRAZOLE SODIUM 9PANTOPRAZOLE SODIUM) [Concomitant]
  7. RENVELA (SEVELAMER CARBONATE) [Concomitant]
  8. TRAMADOL HCL (TRAMADOL HYDROCHLORIDE) [Concomitant]
  9. WARFARIN SODIUM (WARFARIN SODIUM) [Concomitant]
  10. VELCADE (BORTEZOMIB) [Concomitant]

REACTIONS (1)
  - Platelet count decreased [None]
